FAERS Safety Report 7561153-X (Version None)
Quarter: 2011Q2

REPORT INFORMATION
  Report Type: 
  Country: None (occurrence: None)
  Receive Date: 20110621
  Receipt Date: 20101012
  Transmission Date: 20111010
  Serious: No
  Sender: FDA-Public Use
  Company Number: US-ASTRAZENECA-2010SE48137

PATIENT
  Sex: Female

DRUGS (3)
  1. PULMICORT FLEXHALER [Suspect]
     Dosage: 12 PUFFS PER DAY
     Route: 055
  2. PULMICORT FLEXHALER [Suspect]
     Dosage: 8 PUFFS PER DAY
     Route: 055
  3. PULMICORT FLEXHALER [Suspect]
     Indication: ASTHMA
     Route: 055

REACTIONS (3)
  - MALAISE [None]
  - INCORRECT DOSE ADMINISTERED [None]
  - DYSPNOEA [None]
